FAERS Safety Report 7091260-X (Version None)
Quarter: 2010Q4

REPORT INFORMATION
  Report Type: 
  Country: None (occurrence: None)
  Receive Date: 20101101
  Receipt Date: 20100319
  Transmission Date: 20110411
  Serious: Yes (Disabling, Other)
  Sender: FDA-Public Use
  Company Number: AVE_01526_2010

PATIENT
  Sex: Male
  Weight: 47.8998 kg

DRUGS (4)
  1. CLONIDINE [Suspect]
     Indication: AGGRESSION
     Dosage: (DF TRANSDERMAL)
     Route: 062
     Dates: start: 20090801
  2. CLONIDINE [Suspect]
     Indication: OFF LABEL USE
     Dosage: (DF TRANSDERMAL)
     Route: 062
     Dates: start: 20090801
  3. SEROQUEL [Concomitant]
  4. STRATTERA [Concomitant]

REACTIONS (4)
  - APPLICATION SITE RASH [None]
  - OFF LABEL USE [None]
  - PRODUCT ADHESION ISSUE [None]
  - PRODUCT QUALITY ISSUE [None]
